FAERS Safety Report 8353893-X (Version None)
Quarter: 2012Q2

REPORT INFORMATION
  Report Type: 
  Country: None (occurrence: None)
  Receive Date: 20120511
  Receipt Date: 20120213
  Transmission Date: 20120825
  Serious: No
  Sender: FDA-Public Use
  Company Number: US-GLAXOSMITHKLINE-A0966088A

PATIENT
  Sex: Female

DRUGS (1)
  1. TYKERB [Suspect]
     Indication: BREAST CANCER
     Dosage: 1000MG PER DAY
     Route: 048

REACTIONS (6)
  - ERYTHEMA [None]
  - GASTROINTESTINAL DISORDER [None]
  - CONSTIPATION [None]
  - FINGERPRINT LOSS [None]
  - DIARRHOEA [None]
  - BURNING SENSATION [None]
